FAERS Safety Report 6021145-9 (Version None)
Quarter: 2008Q4

REPORT INFORMATION
  Report Type: 
  Country: None (occurrence: None)
  Receive Date: 20081229
  Receipt Date: 20081216
  Transmission Date: 20090506
  Serious: Yes (Death, Hospitalization)
  Sender: FDA-Public Use
  Company Number: US-AVENTIS-200818456US

PATIENT
  Age: 90 Year
  Sex: Female
  Weight: 64.55 kg

DRUGS (9)
  1. LOVENOX [Suspect]
     Dosage: DOSE: UNK
     Dates: start: 20081128
  2. PLAVIX [Suspect]
     Dosage: DOSE: UNK
     Route: 048
  3. INTEGRILIN [Suspect]
     Route: 042
     Dates: start: 20081128, end: 20081128
  4. INTEGRILIN [Suspect]
     Dosage: DOSE: 10 ML Q HOUR FOR 12 HOURS
     Route: 042
     Dates: start: 20081128, end: 20081128
  5. ASPIRIN [Suspect]
     Dosage: DOSE: UNK
  6. MECLIZINE [Concomitant]
     Dosage: DOSE: UNK
  7. ALLEGRA-D 12 HOUR [Concomitant]
     Dosage: DOSE: UNK
  8. ZOLOFT [Concomitant]
     Dosage: DOSE: UNK
  9. AZITHROMYCIN [Concomitant]
     Dosage: DOSE: UNK

REACTIONS (4)
  - DEATH [None]
  - POSTOPERATIVE THROMBOSIS [None]
  - RETROPERITONEAL HAEMORRHAGE [None]
  - THROMBOSIS [None]
